FAERS Safety Report 6135094-9 (Version None)
Quarter: 2009Q1

REPORT INFORMATION
  Report Type: 
  Country: None (occurrence: None)
  Receive Date: 20090325
  Receipt Date: 20090308
  Transmission Date: 20090719
  Serious: Yes (Other)
  Sender: FDA-Public Use
  Company Number: 2007S1003239

PATIENT
  Age: 57 Year
  Sex: Female
  Weight: 102.9665 kg

DRUGS (15)
  1. PHOSPHOSODA FLAVOR NOT SPECIFIED [Suspect]
     Dosage: 90 ML; TOTAL; PO
     Route: 048
     Dates: start: 20040523, end: 20040523
  2. PREMARIN [Concomitant]
  3. CLONIDINE [Concomitant]
  4. EFFEXOR [Concomitant]
  5. LEVAQUIN [Concomitant]
  6. TEMEX [Concomitant]
  7. COLACE [Concomitant]
  8. ASPIRIN [Concomitant]
  9. MOTRIN [Concomitant]
  10. CEFOTETAN [Concomitant]
  11. NEXIUM [Concomitant]
  12. ASCORBIC ACID [Concomitant]
  13. VITAMIN E [Concomitant]
  14. ORSENTEA [Concomitant]
  15. PRIMROSE [Concomitant]

REACTIONS (6)
  - DIALYSIS [None]
  - PRODUCT QUALITY ISSUE [None]
  - RENAL FAILURE [None]
  - RENAL TRANSPLANT [None]
  - RENAL TUBULAR NECROSIS [None]
  - TUBULOINTERSTITIAL NEPHRITIS [None]
